FAERS Safety Report 12790168 (Version 1)
Quarter: 2016Q3

REPORT INFORMATION
  Report Type: Spontaneous
  Country: RU (occurrence: RU)
  Receive Date: 20160928
  Receipt Date: 20160928
  Transmission Date: 20161109
  Serious: Yes (Life-Threatening, Hospitalization)
  Sender: FDA-Public Use
  Company Number: RU-ASTRAZENECA-2016SE98470

PATIENT
  Age: 53 Year
  Sex: Male
  Weight: 95 kg

DRUGS (11)
  1. ENALAPRIL [Concomitant]
     Active Substance: ENALAPRIL
  2. BRILINTA [Suspect]
     Active Substance: TICAGRELOR
     Indication: MYOCARDIAL INFARCTION
     Route: 048
     Dates: start: 20160914
  3. INSULIN [Concomitant]
     Active Substance: INSULIN NOS
  4. BRILINTA [Suspect]
     Active Substance: TICAGRELOR
     Indication: MYOCARDIAL INFARCTION
     Route: 048
     Dates: start: 201608, end: 20160912
  5. BRILINTA [Suspect]
     Active Substance: TICAGRELOR
     Indication: STENT PLACEMENT
     Route: 048
     Dates: start: 20160914
  6. THROMBO ASS [Concomitant]
     Active Substance: ASPIRIN
  7. LERCAMEN [Concomitant]
     Dosage: 10
  8. VEROSPIRON [Concomitant]
     Active Substance: SPIRONOLACTONE
  9. BRILINTA [Suspect]
     Active Substance: TICAGRELOR
     Indication: STENT PLACEMENT
     Route: 048
     Dates: start: 201608, end: 20160912
  10. CONCOR [Concomitant]
     Active Substance: BISOPROLOL FUMARATE
  11. INDAPAMIDE. [Concomitant]
     Active Substance: INDAPAMIDE

REACTIONS (5)
  - Hot flush [Recovered/Resolved]
  - Melaena [Recovered/Resolved]
  - Syncope [Recovered/Resolved]
  - Hypoglycaemia [Unknown]
  - Rectal haemorrhage [Recovered/Resolved]

NARRATIVE: CASE EVENT DATE: 20160912
